FAERS Safety Report 11340329 (Version 1)
Quarter: 2015Q3

REPORT INFORMATION
  Report Type: Spontaneous
  Country: US (occurrence: None)
  Receive Date: 20150803
  Receipt Date: 20150803
  Transmission Date: 20151125
  Serious: Yes (Hospitalization)
  Sender: FDA-Public Use
  Company Number: NSR_02183_2015

PATIENT
  Age: 72 Year
  Sex: Female

DRUGS (1)
  1. BACLOFEN. [Suspect]
     Active Substance: BACLOFEN
     Indication: MUSCLE SPASMS
     Route: 048

REACTIONS (7)
  - Activities of daily living impaired [None]
  - Aphasia [None]
  - Mental status changes [None]
  - Neurotoxicity [None]
  - Confusional state [None]
  - Perseveration [None]
  - Disorientation [None]
